FAERS Safety Report 4331196-8 (Version None)
Quarter: 2004Q2

REPORT INFORMATION
  Report Type: 
  Country: None (occurrence: None)
  Receive Date: 20040402
  Receipt Date: 20040329
  Transmission Date: 20050107
  Serious: Yes (Death)
  Sender: FDA-Public Use
  Company Number: 7702

PATIENT
  Age: 75 Year
  Sex: Male

DRUGS (7)
  1. AMIODARONE HCL [Suspect]
     Dosage: 200 MG FREQ UNK
     Route: 048
     Dates: start: 20031013, end: 20040224
  2. WARFARIN SODIUM [Concomitant]
  3. FRUSEMIDE [Concomitant]
  4. SIMVASTATIN [Concomitant]
  5. MEBEVERINE [Concomitant]
  6. FYBOGEL (PLANTAGO OVATA) [Concomitant]
  7. CALCIUM CARBONATE [Concomitant]

REACTIONS (2)
  - DYSPNOEA [None]
  - PULMONARY FIBROSIS [None]
